FAERS Safety Report 5287660-0 (Version None)
Quarter: 2007Q1

REPORT INFORMATION
  Report Type: 
  Country: None (occurrence: None)
  Receive Date: 20070105
  Receipt Date: 20061205
  Transmission Date: 20070707
  Serious: Yes (Other)
  Sender: FDA-Public Use
  Company Number: US-JNJFOC-20061202181

PATIENT
  Age: 45 Year
  Sex: Female

DRUGS (4)
  1. ULTRAM SR [Suspect]
     Indication: PAIN
     Dosage: 100 MG, 1 IN 1 DAY, ORAL
     Route: 048
     Dates: start: 20060101
  2. ZYPREXA [Concomitant]
  3. ANTIDEPRESSANT MEDICATION (ANTIDEPRESSANTS) [Concomitant]
  4. NARCOTIC PAIN RELIEVER (NOS) (ANALGESICS) [Concomitant]

REACTIONS (1)
  - CONVULSION [None]
